FAERS Safety Report 11240465 (Version 1)
Quarter: 2015Q3

REPORT INFORMATION
  Report Type: Spontaneous
  Country: US (occurrence: US)
  Receive Date: 20150706
  Receipt Date: 20150706
  Transmission Date: 20151125
  Serious: No
  Sender: FDA-Public Use
  Company Number: US-TEVA-491497USA

PATIENT
  Sex: Male

DRUGS (7)
  1. ROSUVASTATIN [Concomitant]
     Active Substance: ROSUVASTATIN
  2. ENOXAPARIN SODIUM. [Concomitant]
     Active Substance: ENOXAPARIN SODIUM
  3. METHYLSULFONYLMETHANE [Concomitant]
     Active Substance: DIMETHYL SULFONE
  4. PARACETAMOL [Concomitant]
     Active Substance: ACETAMINOPHEN
  5. KETOCONAZOLE. [Suspect]
     Active Substance: KETOCONAZOLE
     Dosage: 600 MILLIGRAM DAILY;
  6. CALCIUM [Concomitant]
     Active Substance: CALCIUM
  7. MONTELUKAST [Concomitant]
     Active Substance: MONTELUKAST SODIUM

REACTIONS (1)
  - Gastric pH decreased [Unknown]
